FAERS Safety Report 7622723-3 (Version None)
Quarter: 2011Q3

REPORT INFORMATION
  Report Type: 
  Country: None (occurrence: None)
  Receive Date: 20110719
  Receipt Date: 20110719
  Transmission Date: 20111222
  Serious: No
  Sender: FDA-Public Use
  Company Number: None

PATIENT
  Sex: Male
  Weight: 73.0291 kg

DRUGS (2)
  1. RITUXAN [Suspect]
  2. REVLIMID [Suspect]

REACTIONS (2)
  - HYPERSENSITIVITY [None]
  - RASH [None]
